FAERS Safety Report 13857681 (Version 1)
Quarter: 2017Q3

REPORT INFORMATION
  Report Type: Spontaneous
  Country: BR (occurrence: BR)
  Receive Date: 20170811
  Receipt Date: 20170811
  Transmission Date: 20171127
  Serious: Yes (Other)
  Sender: FDA-Public Use
  Company Number: BR-AMGEN-BRASP2015011011

PATIENT
  Age: 30 Year
  Sex: Male

DRUGS (1)
  1. ENBREL [Suspect]
     Active Substance: ETANERCEPT
     Indication: PSORIASIS
     Dosage: 50 MG, 1X/WEEK
     Route: 065
     Dates: end: 201511

REACTIONS (9)
  - Emotional disorder [Unknown]
  - Pruritus [Unknown]
  - Drug ineffective [Unknown]
  - Sleep disorder [Unknown]
  - Depression [Unknown]
  - Psoriasis [Unknown]
  - Disease recurrence [Unknown]
  - Sepsis [Unknown]
  - Feeling abnormal [Unknown]

NARRATIVE: CASE EVENT DATE: 201601
